FAERS Safety Report 25469080 (Version 1)
Quarter: 2025Q2

REPORT INFORMATION
  Report Type: Spontaneous
  Country: US (occurrence: None)
  Receive Date: 20250613
  Receipt Date: 20250613
  Transmission Date: 20250717
  Serious: No
  Sender: FDA-CTU
  Company Number: None

PATIENT

DRUGS (7)
  1. DEVICE [Suspect]
     Active Substance: DEVICE
  2. ADDERALL [Suspect]
     Active Substance: AMPHETAMINE ASPARTATE\AMPHETAMINE SULFATE\DEXTROAMPHETAMINE SACCHARATE\DEXTROAMPHETAMINE SULFATE
  3. WELLBUTRIN [Suspect]
     Active Substance: BUPROPION HYDROCHLORIDE
  4. SEMAGLUTIDE [Suspect]
     Active Substance: SEMAGLUTIDE
  5. METFORMIN [Suspect]
     Active Substance: METFORMIN HYDROCHLORIDE
  6. SAXENDA [Suspect]
     Active Substance: LIRAGLUTIDE
  7. LAMOTRIGINE [Suspect]
     Active Substance: LAMOTRIGINE

REACTIONS (2)
  - Therapeutic product effect incomplete [None]
  - Adverse reaction [None]

NARRATIVE: CASE EVENT DATE: 20250613
